FAERS Safety Report 6885428-2 (Version None)
Quarter: 2010Q3

REPORT INFORMATION
  Report Type: 
  Country: None (occurrence: None)
  Receive Date: 20100729
  Receipt Date: 20080602
  Transmission Date: 20110219
  Serious: No
  Sender: FDA-Public Use
  Company Number: US-PFIZER INC-2008046466

PATIENT
  Sex: Male
  Weight: 84.09 kg

DRUGS (5)
  1. CELEBREX [Suspect]
     Indication: ARTHRITIS
     Dates: start: 20080526, end: 20080529
  2. LISINOPRIL [Concomitant]
  3. NAMENDA [Concomitant]
  4. METFORMIN HCL [Concomitant]
  5. EXELON [Concomitant]

REACTIONS (2)
  - BLISTER [None]
  - RASH [None]
